FAERS Safety Report 15045028 (Version 7)
Quarter: 2019Q1

REPORT INFORMATION
  Report Type: Spontaneous
  Country: IT (occurrence: IT)
  Receive Date: 20180621
  Receipt Date: 20190201
  Transmission Date: 20190417
  Serious: Yes (Hospitalization, Other)
  Sender: FDA-Public Use
  Company Number: IT-PFIZER INC-2018242437

PATIENT
  Age: 69 Year
  Sex: Female
  Weight: 101 kg

DRUGS (2)
  1. ELIQUIS [Suspect]
     Active Substance: APIXABAN
     Indication: CEREBROVASCULAR ACCIDENT PROPHYLAXIS
     Dosage: 5 MG, BID
     Route: 048
     Dates: start: 20180519, end: 20180520
  2. HEPARIN SODIUM. [Suspect]
     Active Substance: HEPARIN SODIUM
     Indication: EMBOLISM
     Dosage: UNK
     Route: 042
     Dates: start: 20180520, end: 20180523

REACTIONS (4)
  - Subdural haemorrhage [Recovering/Resolving]
  - Pulmonary embolism [Recovered/Resolved]
  - Neoplasm malignant [Unknown]
  - Seizure [Unknown]

NARRATIVE: CASE EVENT DATE: 20180601
